FAERS Safety Report 14798452 (Version 3)
Quarter: 2022Q2

REPORT INFORMATION
  Report Type: Spontaneous
  Country: US (occurrence: US)
  Receive Date: 20180424
  Receipt Date: 20220429
  Transmission Date: 20220721
  Serious: No
  Sender: FDA-Public Use
  Company Number: US-PFIZER INC-2018166023

PATIENT
  Age: 49 Year
  Sex: Female

DRUGS (7)
  1. XELJANZ XR [Suspect]
     Active Substance: TOFACITINIB CITRATE
     Indication: Rheumatoid arthritis
     Dosage: 11 MG, DAILY
     Route: 048
     Dates: start: 201803
  2. BIOTIN [Concomitant]
     Active Substance: BIOTIN
  3. TAGAMET [Concomitant]
     Active Substance: CIMETIDINE
  4. ARAVA [Concomitant]
     Active Substance: LEFLUNOMIDE
  5. PIROXICAM [Concomitant]
     Active Substance: PIROXICAM
  6. PRENATAL FORMULA [ASCORBIC ACID;BETACAROTENE;CALCIUM CARBONATE;COLECAL [Concomitant]
  7. POTASSIUM [Concomitant]
     Active Substance: POTASSIUM

REACTIONS (3)
  - Aggression [Unknown]
  - Mood altered [Unknown]
  - Memory impairment [Unknown]

NARRATIVE: CASE EVENT DATE: 20180412
